FAERS Safety Report 6239463-8 (Version None)
Quarter: 2009Q2

REPORT INFORMATION
  Report Type: 
  Country: None (occurrence: None)
  Receive Date: 20090618
  Receipt Date: 20090618
  Transmission Date: 20091009
  Serious: No
  Sender: FDA-Public Use
  Company Number: None

PATIENT
  Age: 60 Year
  Sex: Female
  Weight: 74.8435 kg

DRUGS (1)
  1. ZICAM GEL SWABS ZINCUM GLUCONICUM MATRIXX INITIATIVES, INC. [Suspect]
     Indication: NASOPHARYNGITIS
     Dosage: ONE SWAB 3-4 TIMES PER DAY ENDOSINUSIAL
     Route: 006
     Dates: start: 20090501, end: 20090505

REACTIONS (2)
  - AGEUSIA [None]
  - ANOSMIA [None]
